FAERS Safety Report 18977356 (Version 3)
Quarter: 2021Q2

REPORT INFORMATION
  Report Type: Spontaneous
  Country: US (occurrence: US)
  Receive Date: 20210306
  Receipt Date: 20210403
  Transmission Date: 20210717
  Serious: No
  Sender: FDA-Public Use
  Company Number: US-UNITED THERAPEUTICS-UNT-2021-003852

PATIENT
  Age: 64 Year
  Sex: Female
  Weight: 68.48 kg

DRUGS (5)
  1. REMODULIN [Suspect]
     Active Substance: TREPROSTINIL
     Dosage: 0.012 ?G/KG, CONTINUING
     Route: 058
  2. REMODULIN [Suspect]
     Active Substance: TREPROSTINIL
     Dosage: 0.014 ?G/KG, CONTINUING
     Route: 058
  3. REMODULIN [Suspect]
     Active Substance: TREPROSTINIL
     Indication: PULMONARY ARTERIAL HYPERTENSION
     Dosage: UNK, CONTINUING
     Route: 058
     Dates: start: 20210204
  4. REMODULIN [Suspect]
     Active Substance: TREPROSTINIL
     Dosage: 0.002 ?G/KG, CONTINUING
     Route: 058
  5. REMODULIN [Suspect]
     Active Substance: TREPROSTINIL
     Dosage: UNK, CONTINUING (0.024ML/HR)
     Route: 058

REACTIONS (7)
  - Dyspnoea [Not Recovered/Not Resolved]
  - Feeling abnormal [Unknown]
  - Frequent bowel movements [Unknown]
  - Oedema peripheral [Unknown]
  - Bone pain [Unknown]
  - Pain in extremity [Unknown]
  - Device dislocation [Recovered/Resolved]

NARRATIVE: CASE EVENT DATE: 202102
